FAERS Safety Report 9383917 (Version 1)
Quarter: 2013Q3

REPORT INFORMATION
  Report Type: Spontaneous
  Country: US (occurrence: US)
  Receive Date: 20130705
  Receipt Date: 20130705
  Transmission Date: 20140515
  Serious: No
  Sender: FDA-Public Use
  Company Number: US-B.I. PHARMACEUTICALS,INC./RIDGEFIELD-2013-BI-18813BP

PATIENT
  Age: 79 Year
  Sex: Male

DRUGS (1)
  1. MIRAPEX [Suspect]
     Route: 048
     Dates: start: 20130618, end: 20130621

REACTIONS (3)
  - Somnolence [Recovered/Resolved]
  - Hallucination [Recovered/Resolved]
  - Nightmare [Recovered/Resolved]
